FAERS Safety Report 5938819-8 (Version None)
Quarter: 2008Q4

REPORT INFORMATION
  Report Type: 
  Country: None (occurrence: None)
  Receive Date: 20081103
  Receipt Date: 20081001
  Transmission Date: 20090506
  Serious: No
  Sender: FDA-Public Use
  Company Number: US-BAYER-200835214NA

PATIENT
  Age: 38 Year
  Sex: Female
  Weight: 64 kg

DRUGS (1)
  1. MIRENA [Suspect]
     Indication: CONTRACEPTION
     Route: 015
     Dates: start: 20080701, end: 20081001

REACTIONS (3)
  - ABDOMINAL DISTENSION [None]
  - ACNE [None]
  - BACK PAIN [None]
